FAERS Safety Report 8340075-0 (Version None)
Quarter: 2012Q2

REPORT INFORMATION
  Report Type: 
  Country: None (occurrence: None)
  Receive Date: 20120507
  Receipt Date: 20090723
  Transmission Date: 20120825
  Serious: No
  Sender: FDA-Public Use
  Company Number: US-TEVA-2009004216

PATIENT
  Sex: Male
  Weight: 88.076 kg

DRUGS (3)
  1. TREANDA [Suspect]
     Dosage: '140'
     Route: 042
     Dates: end: 20090306
  2. RITUXAN [Concomitant]
     Dosage: 26.7857 MILLIGRAM;
     Dates: start: 20081212, end: 20090305
  3. TREANDA [Suspect]
     Indication: MANTLE CELL LYMPHOMA
     Dosage: '180'
     Route: 042
     Dates: start: 20081211, end: 20090306

REACTIONS (1)
  - PHLEBITIS [None]
